FAERS Safety Report 10650890 (Version 1)
Quarter: 2014Q4

REPORT INFORMATION
  Report Type: Spontaneous
  Country: IT (occurrence: IT)
  Receive Date: 20141215
  Receipt Date: 20141215
  Transmission Date: 20150529
  Serious: Yes (Hospitalization)
  Sender: FDA-Public Use
  Company Number: IT-ACCORD-027519

PATIENT
  Age: 69 Year
  Sex: Male
  Weight: 67 kg

DRUGS (7)
  1. VOLTAREN [Suspect]
     Active Substance: DICLOFENAC SODIUM
     Indication: PRODUCT USED FOR UNKNOWN INDICATION
     Route: 061
     Dates: start: 20140530, end: 20140601
  2. CIPROFLOXACIN/CIPROFLOXACIN HYDROCHLORIDE/CIPROFLOXACIN LACTATE [Suspect]
     Active Substance: CIPROFLOXACIN
     Indication: PYREXIA
     Dosage: 750 MG DAILY
     Route: 048
     Dates: start: 20140702, end: 20140707
  3. DECODERM TRI [Suspect]
     Active Substance: FLUPREDNIDENE ACETATE\MICONAZOLE NITRATE
     Indication: DERMATITIS ATOPIC
     Dosage: STRENGTH: 20 G
     Route: 061
     Dates: start: 20140609, end: 20140615
  4. NADROPARIN [Suspect]
     Active Substance: NADROPARIN
     Indication: OEDEMA PERIPHERAL
     Dosage: 3800 LU DAILY
     Route: 058
     Dates: start: 20140616, end: 20140630
  5. CARDIOASPIRIN [Suspect]
     Active Substance: ASPIRIN
     Indication: OEDEMA PERIPHERAL
     Dosage: STRENGTH: 100 MG
     Route: 048
     Dates: start: 20140616, end: 20140710
  6. ALLOPURINOL/ALLOPURINOL SODIUM [Suspect]
     Active Substance: ALLOPURINOL SODIUM
     Indication: OEDEMA PERIPHERAL
     Route: 048
     Dates: start: 20140616, end: 20140710
  7. NEODUPLAMOX [Suspect]
     Active Substance: AMOXICILLIN\CLAVULANATE POTASSIUM
     Indication: PYREXIA
     Dosage: STRENGTH: 875 MG/125 MG.
     Route: 048
     Dates: start: 20140617, end: 20140701

REACTIONS (4)
  - Pyrexia [Unknown]
  - Tremor [Unknown]
  - Cutaneous vasculitis [Recovered/Resolved]
  - Oedema [Recovered/Resolved]

NARRATIVE: CASE EVENT DATE: 20140710
